FAERS Safety Report 8589250 (Version 3)
Quarter: 2014Q2

REPORT INFORMATION
  Report Type: Spontaneous
  Country: JP (occurrence: JP)
  Receive Date: 20120531
  Receipt Date: 20140605
  Transmission Date: 20141212
  Serious: Yes (Death)
  Sender: FDA-Public Use
  Company Number: JP-BRACCO-005932

PATIENT
  Age: 60 Year
  Sex: Male
  Weight: 70 kg

DRUGS (8)
  1. IOPAMIRON [Suspect]
     Indication: COMPUTERISED TOMOGRAM ABDOMEN
     Dosage: ADMINISTERED FOR 50 SEC
     Route: 042
     Dates: start: 20120528, end: 20120528
  2. FERRUM [Concomitant]
     Dates: end: 20120528
  3. CALCIUM CARBONATE [Concomitant]
     Dates: end: 20120528
  4. LASIX [Concomitant]
     Dates: end: 20120528
  5. DIGOXIN [Concomitant]
     Dates: end: 20120526
  6. SELOKEN [Concomitant]
     Dates: end: 20120528
  7. OMEPRAL [Concomitant]
     Dates: end: 20120528
  8. MIYA BM [Concomitant]
     Dates: end: 20120528

REACTIONS (1)
  - Anaphylactic shock [Fatal]
